FAERS Safety Report 9620844 (Version 2)
Quarter: 2013Q4

REPORT INFORMATION
  Report Type: Spontaneous
  Country: FR (occurrence: FR)
  Receive Date: 20131015
  Receipt Date: 20131015
  Transmission Date: 20140711
  Serious: Yes (Death)
  Sender: FDA-Public Use
  Company Number: FR-ELI_LILLY_AND_COMPANY-FR201309004543

PATIENT
  Age: 53 Year
  Sex: Male

DRUGS (6)
  1. CYMBALTA [Suspect]
     Dosage: 30 MG, QD
     Route: 048
     Dates: start: 20121204
  2. CYMBALTA [Suspect]
     Dosage: 60 MG, QD
     Route: 048
  3. LEXOMIL [Concomitant]
     Indication: ANXIETY
     Dosage: UNK
     Dates: start: 20121204
  4. LYSANXIA [Concomitant]
     Dosage: UNK, UNKNOWN
     Route: 065
  5. ACECLOFENAC [Concomitant]
     Dosage: UNK, UNKNOWN
     Route: 065
  6. TETRAZEPAM [Concomitant]
     Dosage: UNK, UNKNOWN
     Route: 065

REACTIONS (3)
  - Death [Fatal]
  - Drug level increased [Unknown]
  - Inappropriate affect [Unknown]
